FAERS Safety Report 7247301-X (Version None)
Quarter: 2011Q1

REPORT INFORMATION
  Report Type: 
  Country: None (occurrence: None)
  Receive Date: 20110127
  Receipt Date: 20110126
  Transmission Date: 20110831
  Serious: Yes (Hospitalization)
  Sender: FDA-Public Use
  Company Number: A0909483A

PATIENT
  Sex: Female

DRUGS (4)
  1. MICARDIS [Concomitant]
  2. AVANDIA [Suspect]
     Route: 048
  3. JANUVIA [Concomitant]
  4. LIPITOR [Concomitant]

REACTIONS (3)
  - MEMORY IMPAIRMENT [None]
  - MYOCARDIAL INFARCTION [None]
  - CEREBROVASCULAR ACCIDENT [None]
